FAERS Safety Report 5583049-5 (Version None)
Quarter: 2008Q1

REPORT INFORMATION
  Report Type: 
  Country: None (occurrence: None)
  Receive Date: 20080107
  Receipt Date: 20071228
  Transmission Date: 20080703
  Serious: Yes (Other)
  Sender: FDA-Public Use
  Company Number: B0485305A

PATIENT
  Age: 58 Year
  Sex: Male
  Weight: 55 kg

DRUGS (4)
  1. ARIXTRA [Suspect]
     Indication: THROMBOSIS PROPHYLAXIS
     Dosage: 2.5MG PER DAY
     Route: 058
     Dates: start: 20070824, end: 20070827
  2. AMLODIN [Concomitant]
     Indication: HYPERTENSION
     Dosage: 5MG PER DAY
     Route: 048
  3. URSO 250 [Concomitant]
     Indication: CHRONIC HEPATITIS
     Dosage: 300MG PER DAY
     Route: 048
  4. CEFMETAZON [Concomitant]
     Dates: start: 20070823, end: 20070830

REACTIONS (3)
  - GASTRIC ULCER [None]
  - HAEMATEMESIS [None]
  - UPPER GASTROINTESTINAL HAEMORRHAGE [None]
